FAERS Safety Report 6721706-5 (Version None)
Quarter: 2010Q2

REPORT INFORMATION
  Report Type: 
  Country: None (occurrence: None)
  Receive Date: 20100512
  Receipt Date: 20100505
  Transmission Date: 20101027
  Serious: No
  Sender: FDA-Public Use
  Company Number: DK-ASTRAZENECA-2010SE20630

PATIENT
  Sex: Male
  Weight: 86 kg

DRUGS (2)
  1. SEROQUEL XR [Suspect]
     Indication: SCHIZOPHRENIA, PARANOID TYPE
     Route: 048
     Dates: start: 20090418
  2. INSULIN [Concomitant]
     Indication: TYPE 1 DIABETES MELLITUS
     Dates: start: 20050101

REACTIONS (1)
  - NEUTROPHIL COUNT DECREASED [None]
